FAERS Safety Report 8479443-5 (Version None)
Quarter: 2012Q2

REPORT INFORMATION
  Report Type: 
  Country: None (occurrence: None)
  Receive Date: 20120629
  Receipt Date: 20120628
  Transmission Date: 20120825
  Serious: Yes (Death, Hospitalization)
  Sender: FDA-Public Use
  Company Number: BR-B.I. PHARMACEUTICALS,INC./RIDGEFIELD-2012-BR-00698BR

PATIENT
  Sex: Female

DRUGS (1)
  1. MICARDIS [Suspect]
     Indication: HYPERTENSION
     Route: 048
     Dates: start: 20120501, end: 20120614

REACTIONS (4)
  - SEPTIC SHOCK [None]
  - INTESTINAL OBSTRUCTION [None]
  - HYPERTENSIVE CRISIS [None]
  - ABDOMINAL HERNIA OBSTRUCTIVE [None]
